FAERS Safety Report 15884181 (Version 2)
Quarter: 2019Q1

REPORT INFORMATION
  Report Type: Spontaneous
  Country: US (occurrence: US)
  Receive Date: 20190129
  Receipt Date: 20190206
  Transmission Date: 20190417
  Serious: Yes (Hospitalization)
  Sender: FDA-Public Use
  Company Number: US-FRESENIUS MEDICAL CARE RENAL THERAPIES GROUP-FMC-1901-000121

PATIENT
  Age: 76 Year
  Sex: Female

DRUGS (14)
  1. DELFLEX [Suspect]
     Active Substance: CALCIUM CHLORIDE\DEXTROSE\MAGNESIUM CHLORIDE\SODIUM CHLORIDE\SODIUM LACTATE
     Indication: END STAGE RENAL DISEASE
     Dosage: 4 EXCHANGES
     Route: 033
  2. COREG [Concomitant]
     Active Substance: CARVEDILOL
  3. ACETAMINOPHEN. [Concomitant]
     Active Substance: ACETAMINOPHEN
  4. ISOSORBIDE MONONITRATE. [Concomitant]
     Active Substance: ISOSORBIDE MONONITRATE
  5. ALLOPURINOL. [Concomitant]
     Active Substance: ALLOPURINOL
  6. LASIX [Concomitant]
     Active Substance: FUROSEMIDE
  7. ATORVASTATIN [Concomitant]
     Active Substance: ATORVASTATIN
  8. TIZANIDINE. [Concomitant]
     Active Substance: TIZANIDINE
  9. CARAFATE [Concomitant]
     Active Substance: SUCRALFATE
  10. NOVOLIN [Concomitant]
     Active Substance: INSULIN HUMAN
  11. CENTRUM [Concomitant]
     Active Substance: VITAMINS
  12. PROTONIX [Concomitant]
     Active Substance: PANTOPRAZOLE SODIUM
  13. VITAMINS NOS [Concomitant]
     Active Substance: VITAMINS
  14. NITROGLYCERINE [Concomitant]
     Active Substance: NITROGLYCERIN

REACTIONS (1)
  - Pneumonia [Recovered/Resolved]

NARRATIVE: CASE EVENT DATE: 20190124
